FAERS Safety Report 5933981-5 (Version None)
Quarter: 2008Q4

REPORT INFORMATION
  Report Type: 
  Country: None (occurrence: None)
  Receive Date: 20081024
  Receipt Date: 20081013
  Transmission Date: 20090506
  Serious: Yes (Life-Threatening, Hospitalization, Disabling)
  Sender: FDA-Public Use
  Company Number: 2008090018

PATIENT
  Age: 31 Year
  Sex: Male
  Weight: 85.7298 kg

DRUGS (20)
  1. SOMA [Suspect]
     Indication: ANALGESIA
     Dosage: SEE IMAGE
     Route: 048
     Dates: start: 20040101, end: 20050101
  2. SOMA [Suspect]
     Indication: MUSCLE SPASMS
     Dosage: SEE IMAGE
     Route: 048
     Dates: start: 20040101, end: 20050101
  3. SOMA [Suspect]
     Indication: ANALGESIA
     Dosage: SEE IMAGE
     Route: 048
     Dates: start: 20050101, end: 20060101
  4. SOMA [Suspect]
     Indication: MUSCLE SPASMS
     Dosage: SEE IMAGE
     Route: 048
     Dates: start: 20050101, end: 20060101
  5. SOMA [Suspect]
     Indication: ANALGESIA
     Dosage: SEE IMAGE
     Route: 048
     Dates: start: 20060101, end: 20070101
  6. SOMA [Suspect]
     Indication: MUSCLE SPASMS
     Dosage: SEE IMAGE
     Route: 048
     Dates: start: 20060101, end: 20070101
  7. SOMA [Suspect]
     Indication: ANALGESIA
     Dosage: SEE IMAGE
     Route: 048
     Dates: start: 20070101
  8. SOMA [Suspect]
     Indication: MUSCLE SPASMS
     Dosage: SEE IMAGE
     Route: 048
     Dates: start: 20070101
  9. ACTIQ [Suspect]
     Indication: NECK PAIN
     Dosage: 800 MCG (800 MCG, 1 IN 1 D), BU; 1600MCG (800 MCG, 2 IN 1 D), BU; 2400MCG (800 MCG, 3 IN 1 D), BU
     Route: 002
     Dates: start: 20050701, end: 20060101
  10. ACTIQ [Suspect]
     Indication: NECK PAIN
     Dosage: 800 MCG (800 MCG, 1 IN 1 D), BU; 1600MCG (800 MCG, 2 IN 1 D), BU; 2400MCG (800 MCG, 3 IN 1 D), BU
     Route: 002
     Dates: start: 20060201, end: 20060301
  11. ACTIQ [Suspect]
     Indication: NECK PAIN
     Dosage: 800 MCG (800 MCG, 1 IN 1 D), BU; 1600MCG (800 MCG, 2 IN 1 D), BU; 2400MCG (800 MCG, 3 IN 1 D), BU
     Route: 002
     Dates: start: 20061002, end: 20070201
  12. OXYCONTIN [Suspect]
     Indication: ANALGESIA
     Dosage: 120 MG (40 MG, 3 IN 1 D), ORAL; 360 MG (120 MG, 3 IN 1 D), ORAL; 480 MG (160 MG, 3 IN 1 D), ORAL
     Route: 048
     Dates: start: 20050101
  13. DILAUDID [Suspect]
     Dosage: 20 MG (20 MG, 1 IN 1 D), ORAL
     Route: 048
     Dates: end: 20060101
  14. DILAUDID [Suspect]
     Dosage: 20 MG (20 MG, 1 IN 1 D), ORAL
     Route: 048
     Dates: start: 20060101
  15. KLONOPIN [Suspect]
     Dosage: SEE IMAGE
     Route: 048
     Dates: start: 20050101, end: 20050601
  16. KLONOPIN [Suspect]
     Dosage: SEE IMAGE
     Route: 048
     Dates: start: 20050601, end: 20060101
  17. KLONOPIN [Suspect]
     Dosage: SEE IMAGE
     Route: 048
     Dates: start: 20060101, end: 20070101
  18. KLONOPIN [Suspect]
     Dosage: SEE IMAGE
     Route: 048
     Dates: start: 20070101
  19. AMBIEN [Concomitant]
  20. SUBUTEX [Concomitant]

REACTIONS (28)
  - ACCIDENT AT WORK [None]
  - ALCOHOL PROBLEM [None]
  - ARTIFICIAL CROWN PROCEDURE [None]
  - BRUXISM [None]
  - DENTAL CARIES [None]
  - DEPRESSION [None]
  - DRUG DEPENDENCE [None]
  - DRUG TOXICITY [None]
  - DRY MOUTH [None]
  - ENDODONTIC PROCEDURE [None]
  - GINGIVITIS [None]
  - IMPAIRED DRIVING ABILITY [None]
  - IMPRISONMENT [None]
  - MENTAL DISORDER [None]
  - MENTAL DISORDER DUE TO A GENERAL MEDICAL CONDITION [None]
  - PAIN [None]
  - POOR PERSONAL HYGIENE [None]
  - SUICIDE ATTEMPT [None]
  - TOOTH DISORDER [None]
  - TOOTH EROSION [None]
  - TOOTH EXTRACTION [None]
  - TOOTH FRACTURE [None]
  - TOOTH INFECTION [None]
  - TOOTH LOSS [None]
  - TOOTH REPAIR [None]
  - TOOTHACHE [None]
  - TREATMENT NONCOMPLIANCE [None]
  - WISDOM TEETH REMOVAL [None]
